FAERS Safety Report 5388716-4 (Version None)
Quarter: 2007Q3

REPORT INFORMATION
  Report Type: 
  Country: None (occurrence: None)
  Receive Date: 20070716
  Receipt Date: 20070711
  Transmission Date: 20080115
  Serious: Yes (Death, Life-Threatening, Hospitalization, Other)
  Sender: FDA-Public Use
  Company Number: US-MERCK-0706USA00342

PATIENT
  Age: 49 Year
  Sex: Male

DRUGS (6)
  1. PRIMAXIN [Suspect]
     Route: 042
     Dates: start: 20070503, end: 20070503
  2. CEFTIN [Concomitant]
     Route: 065
  3. TYLENOL [Concomitant]
     Route: 065
  4. FENTANYL [Concomitant]
     Route: 065
  5. LABETALOL HYDROCHLORIDE [Concomitant]
     Route: 065
  6. DILAUDID [Concomitant]
     Route: 065

REACTIONS (2)
  - CARDIAC ARREST [None]
  - VISION BLURRED [None]
